FAERS Safety Report 15929934 (Version 1)
Quarter: 2019Q1

REPORT INFORMATION
  Report Type: Spontaneous
  Country: AU (occurrence: AU)
  Receive Date: 20190206
  Receipt Date: 20190206
  Transmission Date: 20190417
  Serious: Yes (Other)
  Sender: FDA-Public Use
  Company Number: PHHY2019AU025047

PATIENT
  Age: 17 Year
  Sex: Female

DRUGS (5)
  1. METHOTREXATE. [Suspect]
     Active Substance: METHOTREXATE
     Indication: SJOGREN^S SYNDROME
     Dosage: UNK
     Route: 065
     Dates: start: 2013
  2. HYDROXYCHLOROQUINE [Suspect]
     Active Substance: HYDROXYCHLOROQUINE
     Indication: SJOGREN^S SYNDROME
     Dosage: UNK
     Route: 065
     Dates: start: 2013
  3. CYCLOPHOSPHAMIDE. [Suspect]
     Active Substance: CYCLOPHOSPHAMIDE
     Indication: SJOGREN^S SYNDROME
     Dosage: UNK
     Route: 065
     Dates: start: 2015, end: 2017
  4. RITUXIMAB. [Suspect]
     Active Substance: RITUXIMAB
     Indication: SJOGREN^S SYNDROME
     Dosage: UNK
     Route: 065
  5. PREDNISOLONE. [Suspect]
     Active Substance: PREDNISOLONE
     Indication: SJOGREN^S SYNDROME
     Dosage: UNK
     Route: 065

REACTIONS (21)
  - Neutropenia [Recovered/Resolved]
  - Cholecystitis [Unknown]
  - Disease progression [Unknown]
  - Arthralgia [Unknown]
  - Stomatitis [Recovered/Resolved]
  - Vasculitis [Unknown]
  - Polyarthritis [Unknown]
  - Paraproteinaemia [Unknown]
  - Purpura [Unknown]
  - Tubulointerstitial nephritis [Unknown]
  - Nephrocalcinosis [Unknown]
  - Recrudescent typhus [Unknown]
  - Neuropathy peripheral [Unknown]
  - Cryoglobulinaemia [Unknown]
  - Haematochezia [Unknown]
  - Palindromic rheumatism [Unknown]
  - Sjogren^s syndrome [Unknown]
  - Mood swings [Unknown]
  - Fatigue [Unknown]
  - Malaise [Unknown]
  - Tenosynovitis [Unknown]

NARRATIVE: CASE EVENT DATE: 2014
